FAERS Safety Report 12933935 (Version 2)
Quarter: 2016Q4

REPORT INFORMATION
  Report Type: Other
  Country: IT (occurrence: IT)
  Receive Date: 20161111
  Receipt Date: 20161129
  Transmission Date: 20170207
  Serious: Yes (Other)
  Sender: FDA-Public Use
  Company Number: IT-APOTEX-2016AP014479

PATIENT
  Sex: Male

DRUGS (4)
  1. CLOPIDOGREL APOTEX [Suspect]
     Active Substance: CLOPIDOGREL BISULFATE
     Indication: CARDIOVASCULAR DISORDER
     Route: 065
  2. LOSARTAN DOC GENERICI [Suspect]
     Active Substance: LOSARTAN
     Indication: CARDIOVASCULAR DISORDER
     Route: 065
  3. BISOPROLOL                         /00802602/ [Suspect]
     Active Substance: BISOPROLOL
     Indication: CARDIOVASCULAR DISORDER
     Route: 065
  4. ANGIOX [Suspect]
     Active Substance: BIVALIRUDIN
     Indication: CARDIOVASCULAR DISORDER
     Route: 065

REACTIONS (1)
  - Kounis syndrome [Unknown]
